FAERS Safety Report 9335412 (Version 1)
Quarter: 2013Q2

REPORT INFORMATION
  Report Type: Spontaneous
  Country: US (occurrence: US)
  Receive Date: 20130606
  Receipt Date: 20130606
  Transmission Date: 20140414
  Serious: No
  Sender: FDA-Public Use
  Company Number: US-009507513-1306USA001058

PATIENT
  Age: 7 Year
  Sex: Male

DRUGS (2)
  1. TEMODAR [Suspect]
     Indication: NEUROBLASTOMA
     Dosage: 60 MG, QD
     Route: 048
  2. IRINOTECAN HYDROCHLORIDE [Concomitant]

REACTIONS (2)
  - Vomiting [Not Recovered/Not Resolved]
  - Underdose [Unknown]
